FAERS Safety Report 5158630-8 (Version None)
Quarter: 2006Q4

REPORT INFORMATION
  Report Type: 
  Country: None (occurrence: None)
  Receive Date: 20061128
  Receipt Date: 20061116
  Transmission Date: 20070319
  Serious: Yes (Hospitalization)
  Sender: FDA-Public Use
  Company Number: US-ELI_LILLY_AND_COMPANY-US200611004007

PATIENT
  Age: 76 Year
  Sex: Female

DRUGS (6)
  1. ILETIN [Suspect]
     Dosage: UNK, UNKNOWN
  2. ILETIN [Suspect]
     Dosage: UNK, UNKNOWN
  3. HUMALOG [Suspect]
     Dosage: UNK, AS NEEDED
     Dates: start: 20061101
  4. LANTUS [Concomitant]
     Dosage: UNK, UNKNOWN
  5. GLYBURIDE [Concomitant]
     Dosage: UNK, UNKNOWN
  6. NOVOLOG [Concomitant]
     Dosage: UNK, UNKNOWN
     Dates: start: 20061101

REACTIONS (6)
  - BLOOD GLUCOSE INCREASED [None]
  - DRUG HYPERSENSITIVITY [None]
  - DRUG INEFFECTIVE [None]
  - HEADACHE [None]
  - THERAPY REGIMEN CHANGED [None]
  - VISION BLURRED [None]
